FAERS Safety Report 15431376 (Version 1)
Quarter: 2018Q3

REPORT INFORMATION
  Report Type: Spontaneous
  Country: JP (occurrence: JP)
  Receive Date: 20180926
  Receipt Date: 20180926
  Transmission Date: 20181010
  Serious: Yes (Death, Other)
  Sender: FDA-Public Use
  Company Number: JP-ALLERGAN-1846292US

PATIENT
  Age: 7 Decade
  Sex: Female

DRUGS (2)
  1. BOTOX [Suspect]
     Active Substance: ONABOTULINUMTOXINA
     Indication: MUSCLE SPASMS
     Dosage: UNK, SINGLE
     Route: 030
     Dates: start: 20161212, end: 20161212
  2. BOTOX [Suspect]
     Active Substance: ONABOTULINUMTOXINA
     Dosage: UNK, SINGLE
     Route: 030
     Dates: start: 20141205, end: 20141205

REACTIONS (5)
  - Feelings of worthlessness [Unknown]
  - Decreased appetite [Unknown]
  - Completed suicide [Fatal]
  - Mental disorder [Unknown]
  - Starvation [Unknown]

NARRATIVE: CASE EVENT DATE: 2018
